FAERS Safety Report 20836053 (Version 1)
Quarter: 2022Q2

REPORT INFORMATION
  Report Type: Spontaneous
  Country: US (occurrence: US)
  Receive Date: 20220516
  Receipt Date: 20220516
  Transmission Date: 20220721
  Serious: Yes (Life-Threatening, Other)
  Sender: FDA-Public Use
  Company Number: US-CELLTRION INC.-2022US006519

PATIENT

DRUGS (4)
  1. RITUXIMAB [Suspect]
     Active Substance: RITUXIMAB
     Indication: Immune thrombocytopenia
     Dosage: 100 MG/M2 FOR 3 DOSES
  2. RITUXIMAB [Suspect]
     Active Substance: RITUXIMAB
     Indication: Evans syndrome
     Dosage: 375 MG/M2 FOR  2 DOSES
  3. OBINUTUZUMAB [Suspect]
     Active Substance: OBINUTUZUMAB
     Indication: Immune thrombocytopenia
     Dosage: 1000 MG/M2, TWO DOSES
  4. HUMAN IMMUNOGLOBULIN G [Suspect]
     Active Substance: HUMAN IMMUNOGLOBULIN G
     Indication: Immune thrombocytopenia
     Dosage: 1 GRAM PER KILOGRAM X 3 DOSES
     Route: 042

REACTIONS (4)
  - Haemorrhage intracranial [Unknown]
  - Evans syndrome [Unknown]
  - Piriformis syndrome [Unknown]
  - Off label use [Unknown]
